FAERS Safety Report 5144802-5 (Version None)
Quarter: 2006Q4

REPORT INFORMATION
  Report Type: 
  Country: None (occurrence: None)
  Receive Date: 20061107
  Receipt Date: 20061010
  Transmission Date: 20070319
  Serious: Yes (Other)
  Sender: FDA-Public Use
  Company Number: PHBS2006NL15819

PATIENT
  Age: 54 Year
  Sex: Male

DRUGS (3)
  1. HYDROCHLOROTHIAZIDE [Concomitant]
     Dosage: 0.5 DF, QD
     Route: 048
     Dates: start: 20030328
  2. TAMSULOSIN HCL [Concomitant]
     Dosage: 0.4 MG, QD
     Route: 048
     Dates: start: 20060802
  3. EMSELEX EXTENDED RELEASE [Suspect]
     Indication: BLADDER DISORDER
     Dosage: 7.5 MG, QD
     Route: 065
     Dates: start: 20060921

REACTIONS (2)
  - AMNESIA [None]
  - DIZZINESS [None]
